FAERS Safety Report 9944726 (Version 1)
Quarter: 2014Q1

REPORT INFORMATION
  Report Type: Spontaneous
  Country: US (occurrence: US)
  Receive Date: 20140303
  Receipt Date: 20140303
  Transmission Date: 20141002
  Serious: No
  Sender: FDA-Public Use
  Company Number: US-ABBVIE-13P-163-1053276-00

PATIENT
  Sex: Male
  Weight: 124.85 kg

DRUGS (1)
  1. HUMIRA [Suspect]
     Indication: PSORIASIS
     Dates: start: 201007

REACTIONS (4)
  - Wrong technique in drug usage process [Unknown]
  - Injection site pain [Unknown]
  - Psoriasis [Unknown]
  - Incorrect dose administered [Unknown]
